FAERS Safety Report 16399809 (Version 3)
Quarter: 2020Q4

REPORT INFORMATION
  Report Type: Spontaneous
  Country: US (occurrence: US)
  Receive Date: 20190606
  Receipt Date: 20201202
  Transmission Date: 20210113
  Serious: No
  Sender: FDA-Public Use
  Company Number: US-SA-2019SA152460

PATIENT

DRUGS (7)
  1. BETAMETHASONE. [Concomitant]
     Active Substance: BETAMETHASONE
  2. DUPIXENT [Suspect]
     Active Substance: DUPILUMAB
     Indication: DERMATITIS ATOPIC
     Dosage: 300 MG, QOW
     Route: 058
     Dates: start: 20190124
  3. PROBIOTICS NOS [Concomitant]
     Active Substance: PROBIOTICS NOS
  4. DUPIXENT [Suspect]
     Active Substance: DUPILUMAB
     Dosage: 300 MG, QOW
     Route: 058
     Dates: start: 20200914
  5. CLOBETA [CLOBETASOL PROPIONATE] [Concomitant]
  6. HYDROCORTISONE. [Concomitant]
     Active Substance: HYDROCORTISONE
  7. DUPIXENT [Suspect]
     Active Substance: DUPILUMAB
     Indication: ECZEMA
     Dosage: UNK, Q10D
     Route: 058

REACTIONS (5)
  - Dermatitis atopic [Unknown]
  - Off label use [Unknown]
  - Rash [Unknown]
  - Oral herpes [Unknown]
  - Eczema [Unknown]

NARRATIVE: CASE EVENT DATE: 2019
